FAERS Safety Report 11378779 (Version 1)
Quarter: 2015Q3

REPORT INFORMATION
  Report Type: Spontaneous
  Country: US (occurrence: None)
  Receive Date: 20150812
  Receipt Date: 20150812
  Transmission Date: 20151125
  Serious: Yes (Hospitalization)
  Sender: FDA-Public Use
  Company Number: None

PATIENT
  Age: 94 Year
  Sex: Female
  Weight: 55.3 kg

DRUGS (2)
  1. SIMVASTATIN. [Suspect]
     Active Substance: SIMVASTATIN
     Route: 048
     Dates: start: 20131010, end: 20150305
  2. CYCLOBENZAPRINE [Suspect]
     Active Substance: CYCLOBENZAPRINE
     Route: 048
     Dates: start: 20130204, end: 20150305

REACTIONS (4)
  - Confusional state [None]
  - Rhabdomyolysis [None]
  - Dizziness [None]
  - Fall [None]

NARRATIVE: CASE EVENT DATE: 20150305
